FAERS Safety Report 11675009 (Version 2)
Quarter: 2015Q4

REPORT INFORMATION
  Report Type: Spontaneous
  Country: IT (occurrence: IT)
  Receive Date: 20151028
  Receipt Date: 20151105
  Transmission Date: 20160304
  Serious: Yes (Hospitalization)
  Sender: FDA-Public Use
  Company Number: IT-WATSON-2015-12074

PATIENT
  Age: 21 Year
  Sex: Female

DRUGS (3)
  1. LORAZEPAM. [Suspect]
     Active Substance: LORAZEPAM
     Indication: DRUG ABUSE
     Dosage: 80 DF, TOTAL
     Route: 048
  2. VALDORM                            /00246102/ [Concomitant]
     Active Substance: VALERIAN
     Indication: PRODUCT USED FOR UNKNOWN INDICATION
     Dosage: 30 MG, UNKNOWN
     Route: 065
  3. QUETIAPINA TEVA [Concomitant]
     Active Substance: QUETIAPINE
     Indication: BORDERLINE PERSONALITY DISORDER
     Dosage: 300 MG, UNKNOWN
     Route: 048

REACTIONS (3)
  - Drug abuse [Unknown]
  - Overdose [Unknown]
  - Presyncope [Unknown]

NARRATIVE: CASE EVENT DATE: 20150417
